FAERS Safety Report 5031309-9 (Version None)
Quarter: 2006Q2

REPORT INFORMATION
  Report Type: 
  Country: None (occurrence: None)
  Receive Date: 20060616
  Receipt Date: 20060609
  Transmission Date: 20061013
  Serious: Yes (Other)
  Sender: FDA-Public Use
  Company Number: 226137

PATIENT
  Age: 37 Year
  Sex: Male

DRUGS (13)
  1. RITUXAN [Suspect]
     Indication: NON-HODGKIN'S LYMPHOMA
     Dosage: 700 MG, INTRAVENOUS
     Route: 042
     Dates: start: 20040405, end: 20040617
  2. DOXORUBICIN HYDROCHLORIDE [Suspect]
     Indication: NON-HODGKIN'S LYMPHOMA
     Dosage: 90 MG, INTRAVENOUS
     Route: 042
     Dates: start: 20040407, end: 20040617
  3. CYCLOPHOSPHAMIDE [Suspect]
     Indication: NON-HODGKIN'S LYMPHOMA
     Dosage: 130 MG, INTRAVENOUS
     Route: 042
     Dates: start: 20040407, end: 20040617
  4. ONCOVIN [Suspect]
     Indication: NON-HODGKIN'S LYMPHOMA
     Dosage: 2 MG, INTRAVENOUS
     Route: 042
     Dates: start: 20040407, end: 20040617
  5. PREDNISOLONE [Suspect]
     Indication: NON-HODGKIN'S LYMPHOMA
     Dosage: 100 MG, ORAL
     Route: 048
     Dates: start: 20040407, end: 20040617
  6. LOXONIN (LOXOPROFEN SODIUM) [Concomitant]
  7. POLARAMINE [Concomitant]
  8. SELBEX (TEPRENONE) [Concomitant]
  9. VITAMEDIN (BENFOTIAMINE, CYANOCOBALAMIN, HYDROXOCOBALAMIN, PYRIDOXINE [Concomitant]
  10. ISONIAZID [Concomitant]
  11. SULFAMETHOXAZOLE + TRIMETHOPRIM [Concomitant]
  12. ZANTAC [Concomitant]
  13. NAUZELIN (DOMPERIDONE) [Concomitant]

REACTIONS (2)
  - NEUTROPHIL COUNT DECREASED [None]
  - WHITE BLOOD CELL COUNT DECREASED [None]
